FAERS Safety Report 11664572 (Version 2)
Quarter: 2015Q4

REPORT INFORMATION
  Report Type: Report from Study
  Country: IT (occurrence: IT)
  Receive Date: 20151027
  Receipt Date: 20151202
  Transmission Date: 20160304
  Serious: Yes (Other)
  Sender: FDA-Public Use
  Company Number: IT-SA-2015SA161997

PATIENT
  Age: 67 Year
  Sex: Male

DRUGS (1)
  1. CAMPATH [Suspect]
     Active Substance: ALEMTUZUMAB
     Indication: CHRONIC LYMPHOCYTIC LEUKAEMIA
     Dosage: DOSE:30 MILLIGRAM(S)/MILLILITRE
     Route: 058
     Dates: start: 20150909, end: 20151007

REACTIONS (3)
  - Leukostasis syndrome [Unknown]
  - Leukocytosis [Not Recovered/Not Resolved]
  - Drug ineffective [Unknown]

NARRATIVE: CASE EVENT DATE: 2015
